FAERS Safety Report 5306936-1 (Version None)
Quarter: 2007Q2

REPORT INFORMATION
  Report Type: 
  Country: None (occurrence: None)
  Receive Date: 20070419
  Receipt Date: 20070404
  Transmission Date: 20071010
  Serious: Yes (Hospitalization)
  Sender: FDA-Public Use
  Company Number: VNL_0504_2007

PATIENT
  Age: 53 Year
  Sex: Male
  Weight: 54.4316 kg

DRUGS (12)
  1. APOKYN [Suspect]
     Dosage: 0.4 ML 3X/DAY SC
     Route: 058
     Dates: start: 20061212
  2. CARBIDOPA AND LEVODOPA [Concomitant]
  3. SEROQUEL [Concomitant]
  4. BACLOFEN [Concomitant]
  5. LORAZEPAM [Concomitant]
  6. PROTONIX [Concomitant]
  7. HYDROCODONE [Concomitant]
  8. AZILECT [Concomitant]
  9. ZANAFLEX [Concomitant]
  10. MIRAPEX [Concomitant]
  11. DIPHENATOL [Concomitant]
  12. METRONIDAZOLE [Concomitant]

REACTIONS (2)
  - DIARRHOEA HAEMORRHAGIC [None]
  - OSTEOMYELITIS [None]
